FAERS Safety Report 22818472 (Version 9)
Quarter: 2024Q2

REPORT INFORMATION
  Report Type: Report from Study
  Country: US (occurrence: US)
  Receive Date: 20230814
  Receipt Date: 20240625
  Transmission Date: 20240716
  Serious: No
  Sender: FDA-Public Use
  Company Number: US-ACADIA PHARMACEUTICALS INC.-ACA-2023-TRF-003009

PATIENT
  Age: 28 Year
  Sex: Female

DRUGS (19)
  1. DAYBUE [Suspect]
     Active Substance: TROFINETIDE
     Indication: Rett syndrome
     Dosage: 30 MILLILITER, BID, VIA G TUBE
     Dates: start: 20230715, end: 20230716
  2. DAYBUE [Suspect]
     Active Substance: TROFINETIDE
     Dosage: 50 MILLILITER, BID VIA G-TUBE
     Dates: start: 20230717
  3. ENSURE [Concomitant]
     Active Substance: AMINO ACIDS\DEXTROSE\ELECTROLYTES NOS\SOYBEAN OIL\VITAMINS
     Indication: Nutritional supplementation
  4. BISACODYL [Concomitant]
     Active Substance: BISACODYL
  5. ONFI [Concomitant]
     Active Substance: CLOBAZAM
  6. NORETHINDRONE [Concomitant]
     Active Substance: NORETHINDRONE
  7. TIZANIDINE [Concomitant]
     Active Substance: TIZANIDINE
  8. KEPPRA [Concomitant]
     Active Substance: LEVETIRACETAM
  9. VIMPAT [Concomitant]
     Active Substance: LACOSAMIDE
  10. ZYRTEC [Concomitant]
     Active Substance: CETIRIZINE HYDROCHLORIDE
  11. POLYVISOL [ASCORBIC ACID;ERGOCALCIFEROL;NICOTINAMIDE;RETINOL PALMITATE [Concomitant]
  12. MIRALAX [Concomitant]
     Active Substance: POLYETHYLENE GLYCOL 3350
  13. PREVACID [Concomitant]
     Active Substance: LANSOPRAZOLE
  14. PROBIOTICS NOS [Concomitant]
     Active Substance: PROBIOTICS NOS
  15. FOLIC ACID [Concomitant]
     Active Substance: FOLIC ACID
  16. MONUROL [Concomitant]
     Active Substance: FOSFOMYCIN TROMETHAMINE
  17. CRANBERRY JUICE [Concomitant]
     Active Substance: CRANBERRY JUICE
  18. IMODIUM AD [Concomitant]
     Active Substance: LOPERAMIDE HYDROCHLORIDE
  19. METAMUCIL [Concomitant]
     Active Substance: PLANTAGO SEED

REACTIONS (10)
  - Physiotherapy [Not Recovered/Not Resolved]
  - Underdose [Recovered/Resolved]
  - Diarrhoea [Recovering/Resolving]
  - Diarrhoea [Not Recovered/Not Resolved]
  - Diarrhoea [Not Recovered/Not Resolved]
  - Diarrhoea [Not Recovered/Not Resolved]
  - Vomiting [Not Recovered/Not Resolved]
  - Diarrhoea [Recovering/Resolving]
  - Diarrhoea [Not Recovered/Not Resolved]
  - Diarrhoea [Not Recovered/Not Resolved]

NARRATIVE: CASE EVENT DATE: 20230715
